FAERS Safety Report 17586640 (Version 2)
Quarter: 2020Q1

REPORT INFORMATION
  Report Type: Spontaneous
  Country: US (occurrence: US)
  Receive Date: 20200326
  Receipt Date: 20200331
  Transmission Date: 20200409
  Serious: Yes (Other)
  Sender: FDA-Public Use
  Company Number: US-SHIRE-US202010738

PATIENT
  Sex: Female

DRUGS (4)
  1. GAMMAGARD LIQUID [Suspect]
     Active Substance: HUMAN IMMUNOGLOBULIN G
     Indication: SMALL FIBRE NEUROPATHY
     Dosage: 10 GRAM/100 ML TWICE A WEEK WITH ONE DAY IN BETWEEN
     Route: 058
     Dates: start: 20191108
  2. GAMUNEX [Concomitant]
     Active Substance: HUMAN IMMUNOGLOBULIN G
     Indication: PRODUCT USED FOR UNKNOWN INDICATION
  3. PRIVIGEN [Concomitant]
     Active Substance: HUMAN IMMUNOGLOBULIN G
     Indication: PRODUCT USED FOR UNKNOWN INDICATION
  4. HYDROCODONE [Concomitant]
     Active Substance: HYDROCODONE
     Indication: PAIN

REACTIONS (7)
  - Dysstasia [Unknown]
  - Suicidal ideation [Unknown]
  - Feeling abnormal [Unknown]
  - Visual impairment [Unknown]
  - Influenza [Unknown]
  - Drug ineffective [Unknown]
  - Intentional product use issue [Unknown]
